FAERS Safety Report 6441114-4 (Version None)
Quarter: 2009Q4

REPORT INFORMATION
  Report Type: 
  Country: None (occurrence: None)
  Receive Date: 20091116
  Receipt Date: 20091112
  Transmission Date: 20100525
  Serious: Yes (Hospitalization)
  Sender: FDA-Public Use
  Company Number: AU-ROCHE-668416

PATIENT
  Age: 99 Year
  Sex: Male

DRUGS (2)
  1. DIAZEPAM [Suspect]
     Indication: DRUG USE FOR UNKNOWN INDICATION
     Route: 048
  2. PROMETHAZINE HCL [Suspect]
     Indication: DRUG USE FOR UNKNOWN INDICATION
     Route: 048

REACTIONS (8)
  - AGGRESSION [None]
  - AGITATION [None]
  - DRUG ABUSE [None]
  - DRUG TOXICITY [None]
  - INCOHERENT [None]
  - OVERDOSE [None]
  - SINUS TACHYCARDIA [None]
  - TACHYPNOEA [None]
